FAERS Safety Report 20470888 (Version 2)
Quarter: 2022Q2

REPORT INFORMATION
  Report Type: Report from Study
  Country: US (occurrence: US)
  Receive Date: 20220214
  Receipt Date: 20220503
  Transmission Date: 20220721
  Serious: No
  Sender: FDA-Public Use
  Company Number: US-NOVARTISTESTPH-NVSC2022US030899

PATIENT
  Age: 0 Year
  Sex: Male

DRUGS (1)
  1. ZOLGENSMA [Suspect]
     Active Substance: ONASEMNOGENE ABEPARVOVEC-XIOI
     Indication: Spinal muscular atrophy
     Dosage: ONCE/SINGLE (ONE SINGLE DOSE)
     Route: 042
     Dates: start: 20220202, end: 20220202

REACTIONS (2)
  - Abdominal discomfort [Unknown]
  - Troponin increased [Unknown]

NARRATIVE: CASE EVENT DATE: 20220209
